FAERS Safety Report 17855548 (Version 1)
Quarter: 2020Q2

REPORT INFORMATION
  Report Type: Report from Study
  Country: US (occurrence: US)
  Receive Date: 20200603
  Receipt Date: 20200603
  Transmission Date: 20200714
  Serious: No
  Sender: FDA-Public Use
  Company Number: NVSC2020US154023

PATIENT
  Sex: Male

DRUGS (1)
  1. ENTRESTO [Suspect]
     Active Substance: SACUBITRIL\VALSARTAN
     Indication: CARDIAC FAILURE CONGESTIVE
     Dosage: UNK UNK, BID
     Route: 065
     Dates: start: 202005

REACTIONS (7)
  - Confusional state [Unknown]
  - Dyspnoea [Unknown]
  - Decreased appetite [Unknown]
  - Memory impairment [Unknown]
  - Agitation [Unknown]
  - Dizziness [Unknown]
  - Breast tenderness [Unknown]
